FAERS Safety Report 7821320-4 (Version None)
Quarter: 2011Q4

REPORT INFORMATION
  Report Type: 
  Country: None (occurrence: None)
  Receive Date: 20111018
  Receipt Date: 20101118
  Transmission Date: 20120403
  Serious: No
  Sender: FDA-Public Use
  Company Number: US-ASTRAZENECA-2010SE54999

PATIENT
  Age: 47 Year
  Sex: Male

DRUGS (2)
  1. PRIMATENE MIST [Concomitant]
     Dosage: AS REQUIRED
  2. SYMBICORT [Suspect]
     Indication: ASTHMA
     Dosage: 160/4.5 MCG,TWO PUFFS TWO TIMES A DAY
     Route: 055

REACTIONS (2)
  - DRUG DOSE OMISSION [None]
  - DYSPNOEA [None]
